FAERS Safety Report 22220609 (Version 1)
Quarter: 2023Q2

REPORT INFORMATION
  Report Type: Spontaneous
  Country: GB (occurrence: GB)
  Receive Date: 20230417
  Receipt Date: 20230417
  Transmission Date: 20230721
  Serious: Yes (Hospitalization)
  Sender: FDA-Public Use
  Company Number: GB-ADVANZ PHARMA-202303002382

PATIENT

DRUGS (2)
  1. CIPROFLOXACIN [Suspect]
     Active Substance: CIPROFLOXACIN
     Indication: Urinary tract infection
     Dosage: UNK
  2. METHOTREXATE [Suspect]
     Active Substance: METHOTREXATE
     Indication: Rheumatoid arthritis
     Dosage: UNK, LONG-TERM

REACTIONS (5)
  - Toxicity to various agents [Unknown]
  - Mouth ulceration [Recovering/Resolving]
  - Mucosal inflammation [Unknown]
  - Dehydration [Unknown]
  - Confusional state [Unknown]
